FAERS Safety Report 9264241 (Version 1)
Quarter: 2013Q2

REPORT INFORMATION
  Report Type: Spontaneous
  Country: US (occurrence: US)
  Receive Date: 20130430
  Receipt Date: 20130430
  Transmission Date: 20140414
  Serious: No
  Sender: FDA-Public Use
  Company Number: US-009507513-1304USA014904

PATIENT
  Age: 25 Year
  Sex: Female
  Weight: 62.13 kg

DRUGS (1)
  1. NEXPLANON [Suspect]
     Indication: CONTRACEPTION
     Dosage: 1 ROD EVERY 3 YEARS
     Route: 059
     Dates: start: 20121120

REACTIONS (5)
  - Body temperature increased [Unknown]
  - Weight increased [Unknown]
  - Nausea [Unknown]
  - Headache [Unknown]
  - Local swelling [Unknown]
